FAERS Safety Report 14639138 (Version 2)
Quarter: 2018Q1

REPORT INFORMATION
  Report Type: Report from Study
  Country: None (occurrence: BR)
  Receive Date: 20180315
  Receipt Date: 20180319
  Transmission Date: 20180509
  Serious: Yes (Hospitalization, Other)
  Sender: FDA-Public Use
  Company Number: BR-ABBVIE-17K-020-2076103-00

PATIENT
  Age: 47 Year
  Sex: Female
  Weight: 44 kg

DRUGS (2)
  1. HUMIRA [Suspect]
     Active Substance: ADALIMUMAB
     Route: 058
     Dates: start: 2017
  2. HUMIRA [Suspect]
     Active Substance: ADALIMUMAB
     Indication: CROHN^S DISEASE
     Dosage: LOADING DOSE WEEK 0
     Route: 058
     Dates: start: 20170727, end: 20170727

REACTIONS (13)
  - Dehydration [Recovering/Resolving]
  - Weight decreased [Recovering/Resolving]
  - Faecaloma [Recovering/Resolving]
  - Drug ineffective [Unknown]
  - Gastric lavage [Unknown]
  - Pain [Unknown]
  - Gastrointestinal inflammation [Unknown]
  - Post procedural inflammation [Recovering/Resolving]
  - Abdominal pain [Recovering/Resolving]
  - Induration [Not Recovered/Not Resolved]
  - Asthenia [Unknown]
  - Muscle atrophy [Unknown]
  - Gastrointestinal pain [Not Recovered/Not Resolved]

NARRATIVE: CASE EVENT DATE: 2017
